FAERS Safety Report 7240271-X (Version None)
Quarter: 2011Q1

REPORT INFORMATION
  Report Type: 
  Country: None (occurrence: None)
  Receive Date: 20110124
  Receipt Date: 20110111
  Transmission Date: 20110831
  Serious: Yes (Other)
  Sender: FDA-Public Use
  Company Number: PHHY2011US02226

PATIENT
  Sex: Female

DRUGS (10)
  1. TEKTURNA [Suspect]
     Dosage: 300 MG, QD
  2. VITAMIN D [Concomitant]
  3. FUROSEMIDE [Concomitant]
  4. CLONIDINE [Concomitant]
  5. ASPIRIN [Concomitant]
     Dosage: 81MG, UNK
  6. DIOVAN [Concomitant]
  7. CARVEDILOL [Concomitant]
  8. HUMULIN R [Concomitant]
     Dosage: 30/70
  9. SIMVASTATIN [Concomitant]
  10. RAMIPRIL [Concomitant]

REACTIONS (3)
  - MOVEMENT DISORDER [None]
  - FEELING ABNORMAL [None]
  - SPEECH DISORDER [None]
